FAERS Safety Report 23126515 (Version 1)
Quarter: 2023Q4

REPORT INFORMATION
  Report Type: Spontaneous
  Country: DZ (occurrence: DZ)
  Receive Date: 20231030
  Receipt Date: 20231030
  Transmission Date: 20240109
  Serious: Yes (Death)
  Sender: FDA-Public Use
  Company Number: DZ-PFIZER INC-202300350222

PATIENT
  Sex: Female

DRUGS (1)
  1. PALBOCICLIB [Suspect]
     Active Substance: PALBOCICLIB
     Indication: Breast cancer
     Dosage: 75 MG

REACTIONS (1)
  - Neutropenia [Fatal]
